FAERS Safety Report 8844221 (Version 2)
Quarter: 2013Q2

REPORT INFORMATION
  Report Type: Spontaneous
  Country: CN (occurrence: CN)
  Receive Date: 20121016
  Receipt Date: 20130430
  Transmission Date: 20140414
  Serious: Yes (Death, Life-Threatening)
  Sender: FDA-Public Use
  Company Number: CN-ABBOTT-10P-035-0673303-00

PATIENT
  Sex: 0

DRUGS (2)
  1. CYCLOSPORINE [Suspect]
     Indication: IMMUNOSUPPRESSANT DRUG THERAPY
  2. VORICONAZOLE [Interacting]
     Indication: ANTIFUNGAL TREATMENT

REACTIONS (4)
  - Acute graft versus host disease in intestine [Fatal]
  - Drug level above therapeutic [Fatal]
  - Drug interaction [Fatal]
  - Idiopathic pneumonia syndrome [Fatal]
